FAERS Safety Report 18808612 (Version 1)
Quarter: 2021Q1

REPORT INFORMATION
  Report Type: Spontaneous
  Country: US (occurrence: US)
  Receive Date: 20210129
  Receipt Date: 20210129
  Transmission Date: 20210419
  Serious: Yes (Other)
  Sender: FDA-Public Use
  Company Number: US-NOVOPROD-782176

PATIENT

DRUGS (1)
  1. OZEMPIC [Suspect]
     Active Substance: SEMAGLUTIDE
     Indication: PRODUCT USED FOR UNKNOWN INDICATION
     Dosage: UNK (STARTED 3?4 MONTHS AGO)
     Route: 058
     Dates: start: 2020

REACTIONS (3)
  - Pancreatic neoplasm [Unknown]
  - Decreased appetite [Unknown]
  - Hypoglycaemia [Unknown]
